FAERS Safety Report 18110190 (Version 5)
Quarter: 2021Q3

REPORT INFORMATION
  Report Type: Spontaneous
  Country: JP (occurrence: JP)
  Receive Date: 20200804
  Receipt Date: 20210923
  Transmission Date: 20211014
  Serious: Yes (Hospitalization, Other)
  Sender: FDA-Public Use
  Company Number: JP-009507513-2007JPN001899J

PATIENT
  Age: 70 Year
  Sex: Male
  Weight: 41 kg

DRUGS (3)
  1. KEYTRUDA [Suspect]
     Active Substance: PEMBROLIZUMAB
     Indication: LUNG ADENOCARCINOMA STAGE IV
     Dosage: 200 MILLIGRAM, ONCE / 3?4 WEEKS
     Route: 041
     Dates: start: 20190416, end: 2019
  2. KEYTRUDA [Suspect]
     Active Substance: PEMBROLIZUMAB
     Dosage: 200 MILLIGRAM, ONCE / 3?4 WEEKS
     Route: 041
     Dates: start: 202003, end: 2020
  3. KEYTRUDA [Suspect]
     Active Substance: PEMBROLIZUMAB
     Dosage: 200 MILLIGRAM, ONCE / 3?4 WEEKS
     Route: 041
     Dates: start: 20201005

REACTIONS (5)
  - Autoimmune haemolytic anaemia [Recovered/Resolved]
  - Lung opacity [Recovered/Resolved]
  - Interstitial lung disease [Recovered/Resolved]
  - Off label use [Unknown]
  - Radiation pneumonitis [Recovered/Resolved]

NARRATIVE: CASE EVENT DATE: 20190924
